FAERS Safety Report 23933273 (Version 1)
Quarter: 2024Q2

REPORT INFORMATION
  Report Type: Spontaneous
  Country: US (occurrence: US)
  Receive Date: 20240603
  Receipt Date: 20240603
  Transmission Date: 20240716
  Serious: No
  Sender: FDA-Public Use
  Company Number: US-PFIZER INC-2020383494

PATIENT
  Age: 26 Year
  Sex: Male

DRUGS (4)
  1. BRAFTOVI [Suspect]
     Active Substance: ENCORAFENIB
     Indication: Brain neoplasm malignant
     Dosage: 75 MG
  2. BRAFTOVI [Suspect]
     Active Substance: ENCORAFENIB
     Dosage: TAKE 6 TABS FOR A TOTAL OF 450 MG BY MOUTH DAILY
     Route: 048
  3. MEKTOVI [Suspect]
     Active Substance: BINIMETINIB
     Indication: Brain neoplasm malignant
     Dosage: 15 MG
  4. MEKTOVI [Suspect]
     Active Substance: BINIMETINIB
     Dosage: TAKE 45 MG BY MOUTH EVERY 12 HOURS
     Route: 048

REACTIONS (3)
  - Neoplasm progression [Not Recovered/Not Resolved]
  - Off label use [Unknown]
  - Off label use [Unknown]
